FAERS Safety Report 13019910 (Version 1)
Quarter: 2016Q4

REPORT INFORMATION
  Report Type: Spontaneous
  Country: US (occurrence: US)
  Receive Date: 20161212
  Receipt Date: 20161212
  Transmission Date: 20170207
  Serious: No
  Sender: FDA-Public Use
  Company Number: US-ROCHE-1822140

PATIENT
  Sex: Male

DRUGS (1)
  1. TECENTRIQ [Suspect]
     Active Substance: ATEZOLIZUMAB
     Indication: TRANSITIONAL CELL CARCINOMA
     Route: 065

REACTIONS (5)
  - Hypothyroidism [Recovering/Resolving]
  - Back pain [Unknown]
  - Red blood cell sedimentation rate increased [Unknown]
  - Blood testosterone decreased [Recovering/Resolving]
  - Fatigue [Unknown]
